FAERS Safety Report 26204611 (Version 1)
Quarter: 2025Q4

REPORT INFORMATION
  Report Type: Spontaneous
  Country: US (occurrence: US)
  Receive Date: 20251227
  Receipt Date: 20251227
  Transmission Date: 20260118
  Serious: No
  Sender: CELLTRION
  Company Number: US-CELLTRION INC.-2025US039801

PATIENT

DRUGS (1)
  1. RITUXIMAB [Suspect]
     Active Substance: RITUXIMAB
     Indication: Epstein-Barr virus associated lymphoproliferative disorder
     Dosage: 375 MG/M2 IV WEEKLY X 5 (FIVE WEEKLY INFUSIONS/STANDARD PTLD DOSING)
     Route: 042

REACTIONS (1)
  - Drug effective for unapproved indication [Unknown]
